FAERS Safety Report 18076481 (Version 1)
Quarter: 2020Q3

REPORT INFORMATION
  Report Type: Spontaneous
  Country: DE (occurrence: DE)
  Receive Date: 20200727
  Receipt Date: 20200727
  Transmission Date: 20201103
  Serious: Yes (Hospitalization)
  Sender: FDA-Public Use
  Company Number: NVSC2020DE204169

PATIENT
  Age: 13 Year
  Sex: Male
  Weight: 55 kg

DRUGS (4)
  1. IBU?LYSINHEXAL 684 MG FILMTABLETTEN [Suspect]
     Active Substance: IBUPROFEN LYSINE
     Indication: HEADACHE
     Dosage: UNK
     Route: 048
     Dates: start: 20181118, end: 20181118
  2. ELVANSE [Suspect]
     Active Substance: LISDEXAMFETAMINE DIMESYLATE
     Indication: ATTENTION DEFICIT HYPERACTIVITY DISORDER
     Dosage: 30 MG
     Route: 048
  3. NOVAMIN (PROCHLORPERAZINE) [Suspect]
     Active Substance: PROCHLORPERAZINE
     Indication: HEADACHE
     Dosage: 500 MG
     Route: 048
     Dates: start: 20181119, end: 20181119
  4. INTUNIV [Suspect]
     Active Substance: GUANFACINE HYDROCHLORIDE
     Indication: ATTENTION DEFICIT HYPERACTIVITY DISORDER
     Dosage: 2 MG
     Route: 048

REACTIONS (7)
  - Headache [Unknown]
  - Sensory level abnormal [Unknown]
  - Arthritis bacterial [Unknown]
  - Polyneuropathy [Unknown]
  - Vomiting [Unknown]
  - Pain in extremity [Unknown]
  - Abdominal pain [Unknown]

NARRATIVE: CASE EVENT DATE: 20181127
